FAERS Safety Report 23671692 (Version 1)
Quarter: 2024Q1

REPORT INFORMATION
  Report Type: Spontaneous
  Country: US (occurrence: US)
  Receive Date: 20240326
  Receipt Date: 20240326
  Transmission Date: 20240409
  Serious: No
  Sender: FDA-Public Use
  Company Number: US-APOTEX-2024AP001473

PATIENT
  Age: 78 Year
  Sex: Female

DRUGS (4)
  1. CARBAMAZEPINE [Suspect]
     Active Substance: CARBAMAZEPINE
     Indication: Trigeminal neuralgia
     Dosage: 6 DOSAGE FORM, QD (1.5 TABLETS IN THE  MORNING, 1.5 TABLETS AT 12 PM, 1.5 TABLETS AT 04:00 PM, 1.5 T
     Route: 048
  2. CARBAMAZEPINE [Suspect]
     Active Substance: CARBAMAZEPINE
     Dosage: 6 DOSAGE FORM, QD (1.5 TABLETS IN THE  MORNING, 1.5 TABLETS AT 12 PM, 1.5 TABLETS AT 04:00 PM, 1.5 T
     Route: 048
     Dates: start: 202401
  3. LYRICA [Concomitant]
     Active Substance: PREGABALIN
     Indication: Pain
     Dosage: UNK, TID
     Route: 048
  4. TOPAMAX [Concomitant]
     Active Substance: TOPIRAMATE
     Indication: Pain
     Dosage: UNK (3 TO 4 TIMES A DAY)
     Route: 048

REACTIONS (2)
  - Condition aggravated [Not Recovered/Not Resolved]
  - Drug ineffective [Unknown]

NARRATIVE: CASE EVENT DATE: 20240101
